FAERS Safety Report 13216389 (Version 1)
Quarter: 2017Q1

REPORT INFORMATION
  Report Type: Other
  Country: US (occurrence: US)
  Receive Date: 20170210
  Receipt Date: 20170210
  Transmission Date: 20170428
  Serious: No
  Sender: FDA-Public Use
  Company Number: US-ACORDA-ACO_123850_2016

PATIENT
  Sex: Male

DRUGS (1)
  1. AMPYRA [Suspect]
     Active Substance: DALFAMPRIDINE
     Indication: MULTIPLE SCLEROSIS
     Dosage: 10 MG, BID
     Route: 048
     Dates: start: 20160211

REACTIONS (5)
  - Gait disturbance [Unknown]
  - Paraesthesia [Unknown]
  - Fatigue [Unknown]
  - Insomnia [Unknown]
  - Limb discomfort [Recovered/Resolved]
